FAERS Safety Report 7235999-1 (Version None)
Quarter: 2011Q1

REPORT INFORMATION
  Report Type: 
  Country: None (occurrence: None)
  Receive Date: 20110120
  Receipt Date: 20110119
  Transmission Date: 20110831
  Serious: Yes (Other)
  Sender: FDA-Public Use
  Company Number: NL-AMGEN-KDC420221

PATIENT
  Sex: Female

DRUGS (2)
  1. DENOSUMAB [Suspect]
     Indication: METASTASES TO BONE
     Dosage: 120 MG, Q4WK
     Route: 058
     Dates: start: 20090813, end: 20100713
  2. TAMOXIFEN [Concomitant]
     Dosage: UNK UNK, QD
     Route: 048
     Dates: start: 20070620

REACTIONS (1)
  - OSTEONECROSIS OF JAW [None]
